FAERS Safety Report 5992864-5 (Version None)
Quarter: 2008Q4

REPORT INFORMATION
  Report Type: 
  Country: None (occurrence: None)
  Receive Date: 20081212
  Receipt Date: 20081202
  Transmission Date: 20090506
  Serious: Yes (Hospitalization, Other)
  Sender: FDA-Public Use
  Company Number: JP-JNJFOC-20081103642

PATIENT
  Sex: Male
  Weight: 52 kg

DRUGS (16)
  1. REMICADE [Suspect]
     Route: 042
  2. REMICADE [Suspect]
     Route: 042
  3. REMICADE [Suspect]
     Dosage: 12 INFUSIONS ON UNKNOWN DATES
     Route: 042
  4. REMICADE [Suspect]
     Indication: RHEUMATOID ARTHRITIS
     Route: 042
  5. PREDNISOLONE [Suspect]
  6. PREDNISOLONE [Suspect]
  7. PREDNISOLONE [Suspect]
  8. PREDNISOLONE [Suspect]
  9. PREDNISOLONE [Suspect]
  10. PREDNISOLONE [Suspect]
     Indication: DRUG USE FOR UNKNOWN INDICATION
  11. METHOTREXATE [Suspect]
  12. METHOTREXATE [Suspect]
  13. METHOTREXATE [Suspect]
     Indication: RHEUMATOID ARTHRITIS
  14. RIDURA [Concomitant]
     Indication: RHEUMATOID ARTHRITIS
     Route: 048
  15. MOVER [Concomitant]
     Route: 048
  16. ALLOPURINOL [Concomitant]
     Indication: HYPERURICAEMIA
     Route: 048

REACTIONS (3)
  - KNEE ARTHROPLASTY [None]
  - OSTEOMYELITIS [None]
  - TOOTH INFECTION [None]
